FAERS Safety Report 24210065 (Version 1)
Quarter: 2024Q3

REPORT INFORMATION
  Report Type: Spontaneous
  Country: US (occurrence: US)
  Receive Date: 20240814
  Receipt Date: 20240814
  Transmission Date: 20241016
  Serious: No
  Sender: GUARDIAN PHARMACEUTICALS
  Company Number: US-Guardian Drug Company-2160428

PATIENT
  Sex: Male

DRUGS (1)
  1. GUAIFENESIN EXTENDED-RELEASE [Suspect]
     Active Substance: GUAIFENESIN
     Indication: Nasopharyngitis
     Route: 065
     Dates: start: 2024

REACTIONS (2)
  - Insomnia [Unknown]
  - Drug ineffective for unapproved indication [Unknown]

NARRATIVE: CASE EVENT DATE: 20240101
